FAERS Safety Report 18695131 (Version 1)
Quarter: 2021Q1

REPORT INFORMATION
  Report Type: Spontaneous
  Country: US (occurrence: US)
  Receive Date: 20210102
  Receipt Date: 20210102
  Transmission Date: 20210419
  Serious: Yes (Hospitalization)
  Sender: FDA-Public Use
  Company Number: None

PATIENT
  Age: 4 Year
  Sex: Female
  Weight: 12.6 kg

DRUGS (1)
  1. BABY TEETHING (HYLAND HOMEOPATHIC) [Suspect]
     Active Substance: HOMEOPATHICS
     Indication: APHTHOUS ULCER
     Dosage: ?          QUANTITY:2 TABLET(S);OTHER FREQUENCY:2 EVERY 15 MINS;?
     Route: 048
     Dates: start: 20201231, end: 20201231

REACTIONS (7)
  - Seizure [None]
  - Disorientation [None]
  - Screaming [None]
  - Speech disorder [None]
  - Euphoric mood [None]
  - Confusional state [None]
  - Dysphemia [None]

NARRATIVE: CASE EVENT DATE: 20201231
